FAERS Safety Report 10250670 (Version 1)
Quarter: 2014Q2

REPORT INFORMATION
  Report Type: Spontaneous
  Country: CH (occurrence: CH)
  Receive Date: 20140620
  Receipt Date: 20140620
  Transmission Date: 20141212
  Serious: Yes (Life-Threatening, Hospitalization, Other)
  Sender: FDA-Public Use
  Company Number: CH-GLAXOSMITHKLINE-B1005735A

PATIENT
  Age: 31 Year
  Sex: Male

DRUGS (8)
  1. ONDANSETRON [Suspect]
     Indication: PAIN
     Route: 042
  2. METHADONE [Suspect]
     Indication: DRUG ABUSE
     Route: 048
  3. ESCITALOPRAM [Suspect]
     Indication: PRODUCT USED FOR UNKNOWN INDICATION
     Route: 065
  4. ESOMEPRAZOLE [Concomitant]
     Indication: PAIN
     Route: 065
  5. SCOPOLAMINE BUTYLBROMIDE [Concomitant]
     Indication: PAIN
     Route: 065
  6. DIPYRONE [Concomitant]
     Indication: PAIN
     Route: 065
  7. PARACETAMOL (ACETAMINOPHEN) [Concomitant]
     Indication: PAIN
     Route: 065
  8. PETHIDINE [Concomitant]
     Indication: PAIN
     Route: 065

REACTIONS (12)
  - Electrocardiogram QT prolonged [Recovered/Resolved]
  - Ventricular tachycardia [Recovered/Resolved]
  - Drug interaction [Recovered/Resolved]
  - Abdominal pain upper [Recovered/Resolved]
  - Depressed level of consciousness [Recovered/Resolved]
  - Loss of consciousness [Recovered/Resolved]
  - Generalised tonic-clonic seizure [Recovered/Resolved]
  - Hypomagnesaemia [Recovered/Resolved]
  - Hypokalaemia [Recovered/Resolved]
  - Electrocardiogram repolarisation abnormality [Recovered/Resolved]
  - Ventricular hypokinesia [Recovered/Resolved]
  - Torsade de pointes [Recovered/Resolved]
